FAERS Safety Report 10365785 (Version 1)
Quarter: 2014Q3

REPORT INFORMATION
  Report Type: Spontaneous
  Country: FR (occurrence: FR)
  Receive Date: 20140806
  Receipt Date: 20140806
  Transmission Date: 20150326
  Serious: Yes (Hospitalization)
  Sender: FDA-Public Use
  Company Number: FR-PFIZER INC-2014214442

PATIENT
  Age: 75 Year
  Sex: Female

DRUGS (6)
  1. SINEMET [Concomitant]
     Active Substance: CARBIDOPA\LEVODOPA
     Route: 048
  2. PAROXETINE HYDROCHLORIDE. [Concomitant]
     Active Substance: PAROXETINE HYDROCHLORIDE
  3. REQUIP LP [Suspect]
     Active Substance: ROPINIROLE HYDROCHLORIDE
     Dosage: 4 MG, 2X/DAY
     Route: 048
     Dates: end: 20140519
  4. TRIFLUCAN [Suspect]
     Active Substance: FLUCONAZOLE
     Dosage: 800 MG DAILY
     Route: 048
     Dates: start: 20140514
  5. AMBISOME [Suspect]
     Active Substance: AMPHOTERICIN B
     Dosage: 250 MG, 1X/DAY
     Route: 042
     Dates: start: 20140515, end: 20140515
  6. CEFOTAXIME SODIUM [Suspect]
     Active Substance: CEFOTAXIME SODIUM
     Dosage: UNK
     Dates: start: 20140515, end: 20140519

REACTIONS (5)
  - Abdominal pain [Recovered/Resolved]
  - Hallucination, visual [Recovered/Resolved]
  - Nausea [Recovered/Resolved]
  - Pyrexia [Recovered/Resolved]
  - Rash [Recovered/Resolved]

NARRATIVE: CASE EVENT DATE: 20140515
